FAERS Safety Report 11938538 (Version 1)
Quarter: 2016Q1

REPORT INFORMATION
  Report Type: Spontaneous
  Country: CA (occurrence: CA)
  Receive Date: 20160122
  Receipt Date: 20160122
  Transmission Date: 20160526
  Serious: Yes (Other)
  Sender: FDA-Public Use
  Company Number: CA-009507513-1601CAN008054

PATIENT
  Age: 60 Year
  Sex: Female
  Weight: 82 kg

DRUGS (1)
  1. JANUVIA [Suspect]
     Active Substance: SITAGLIPTIN PHOSPHATE
     Indication: DIABETES MELLITUS
     Dosage: 1 TABLET EVERY 1 DAY, DOSE: 100 MG
     Route: 048

REACTIONS (4)
  - Erythema of eyelid [Unknown]
  - Erythema [Unknown]
  - Cardiac failure [Unknown]
  - Dyspnoea [Unknown]
